FAERS Safety Report 11782750 (Version 3)
Quarter: 2016Q1

REPORT INFORMATION
  Report Type: Spontaneous
  Country: US (occurrence: US)
  Receive Date: 20151127
  Receipt Date: 20160105
  Transmission Date: 20160525
  Serious: No
  Sender: FDA-Public Use
  Company Number: US-PFIZER INC-2015390662

PATIENT
  Age: 63 Year
  Sex: Female
  Weight: 79 kg

DRUGS (3)
  1. LYRICA [Suspect]
     Active Substance: PREGABALIN
     Indication: SPINAL CORD INJURY
     Dosage: 75 MG, DAILY,AT NIGHT
  2. ARMOUR THYROID [Concomitant]
     Active Substance: THYROID, PORCINE
     Dosage: UNK
  3. MYRBETRIQ [Interacting]
     Active Substance: MIRABEGRON
     Indication: HYPERTONIC BLADDER
     Dosage: 50 MG, 1X/DAY

REACTIONS (8)
  - Pain in extremity [Unknown]
  - Drug interaction [Unknown]
  - Somnolence [Unknown]
  - Drug ineffective [Unknown]
  - Bladder disorder [Unknown]
  - Gait disturbance [Unknown]
  - Back pain [Unknown]
  - Urinary tract inflammation [Unknown]

NARRATIVE: CASE EVENT DATE: 20151112
